FAERS Safety Report 16692724 (Version 1)
Quarter: 2019Q3

REPORT INFORMATION
  Report Type: Spontaneous
  Country: HR (occurrence: HR)
  Receive Date: 20190812
  Receipt Date: 20190812
  Transmission Date: 20191004
  Serious: Yes (Other)
  Sender: FDA-Public Use
  Company Number: HR-TEVA-2019-HR-1090383

PATIENT
  Age: 17 Year
  Sex: Female
  Weight: 56 kg

DRUGS (6)
  1. ASCORBIC ACID. [Suspect]
     Active Substance: ASCORBIC ACID
     Route: 048
     Dates: start: 20190513, end: 20190513
  2. NORMABEL [Suspect]
     Active Substance: DIAZEPAM
     Dosage: CIJELA TABLE
     Route: 048
     Dates: start: 20190513, end: 20190513
  3. PIRAMIL H [Suspect]
     Active Substance: HYDROCHLOROTHIAZIDE\RAMIPRIL
     Route: 048
     Dates: start: 20190513, end: 20190513
  4. IBUXIN RAPID [Suspect]
     Active Substance: IBUPROFEN LYSINE
     Route: 048
     Dates: start: 20190513, end: 20190513
  5. AMLOPIN [Suspect]
     Active Substance: AMLODIPINE BESYLATE
     Route: 048
     Dates: start: 20190513, end: 20190513
  6. ATORIS [Suspect]
     Active Substance: ATORVASTATIN CALCIUM
     Route: 048
     Dates: start: 20190513, end: 20190513

REACTIONS (5)
  - Intentional overdose [Unknown]
  - Suicide attempt [Unknown]
  - Vomiting [Unknown]
  - Chest discomfort [Unknown]
  - Tachycardia [Unknown]

NARRATIVE: CASE EVENT DATE: 20190513
